APPROVED DRUG PRODUCT: ISOSULFAN BLUE
Active Ingredient: ISOSULFAN BLUE
Strength: 30MG/3ML (10MG/ML)
Dosage Form/Route: SOLUTION;SUBCUTANEOUS
Application: A090874 | Product #003
Applicant: MYLAN INSTITUTIONAL LLC
Approved: Jan 28, 2026 | RLD: No | RS: Yes | Type: RX